FAERS Safety Report 10649749 (Version 2)
Quarter: 2015Q1

REPORT INFORMATION
  Report Type: Spontaneous
  Country: US (occurrence: IT)
  Receive Date: 20141212
  Receipt Date: 20150331
  Transmission Date: 20150720
  Serious: Yes (Disabling, Other)
  Sender: FDA-Public Use
  Company Number: IT-FRI-1000073028

PATIENT
  Age: 45 Year
  Sex: Male

DRUGS (7)
  1. ASENAPINE [Suspect]
     Active Substance: ASENAPINE
     Indication: PARANOIA
     Dosage: 10 MG
     Route: 048
     Dates: start: 201401, end: 201405
  2. ASENAPINE [Suspect]
     Active Substance: ASENAPINE
     Dosage: 5 MG
     Route: 048
     Dates: start: 20130923, end: 201401
  3. ASENAPINE [Suspect]
     Active Substance: ASENAPINE
     Indication: AFFECTIVE DISORDER
     Dosage: 10 MG
     Route: 048
     Dates: start: 20130923, end: 20140418
  4. HALOPERIDOL. [Concomitant]
     Active Substance: HALOPERIDOL
     Dates: start: 20130923, end: 201405
  5. ESCITALOPRAM OXALATE. [Concomitant]
     Active Substance: ESCITALOPRAM OXALATE
     Dates: start: 20130923, end: 201405
  6. ALPRAZOLAM. [Concomitant]
     Active Substance: ALPRAZOLAM
     Dates: start: 20130923, end: 201405
  7. ESCITALOPRAM OXALATE. [Concomitant]
     Active Substance: ESCITALOPRAM OXALATE
     Dosage: 3 MG
     Dates: start: 201405

REACTIONS (3)
  - Anosmia [Not Recovered/Not Resolved]
  - Off label use [Recovered/Resolved]
  - Ageusia [Not Recovered/Not Resolved]

NARRATIVE: CASE EVENT DATE: 20130923
